FAERS Safety Report 24285829 (Version 1)
Quarter: 2024Q3

REPORT INFORMATION
  Report Type: Spontaneous
  Country: US (occurrence: None)
  Receive Date: 20240904
  Receipt Date: 20240904
  Transmission Date: 20241017
  Serious: No
  Sender: Public
  Company Number: None

PATIENT
  Age: 65 Year
  Sex: Female
  Weight: 54.9 kg

DRUGS (4)
  1. LICART [Suspect]
     Active Substance: DICLOFENAC EPOLAMINE
     Indication: Pain
     Route: 062
     Dates: start: 20240902, end: 20240902
  2. VITAMIN D NOS [Concomitant]
     Active Substance: CHOLECALCIFEROL\ERGOCALCIFEROL
  3. GLUCOSAMINE [Concomitant]
     Active Substance: GLUCOSAMINE
  4. HERBALS\TURMERIC [Concomitant]
     Active Substance: HERBALS\TURMERIC

REACTIONS (3)
  - Pain [None]
  - Gait disturbance [None]
  - Weight bearing difficulty [None]

NARRATIVE: CASE EVENT DATE: 20240902
